FAERS Safety Report 9469145 (Version 1)
Quarter: 2013Q3

REPORT INFORMATION
  Report Type: Spontaneous
  Country: US (occurrence: US)
  Receive Date: 20130821
  Receipt Date: 20130821
  Transmission Date: 20140515
  Serious: No
  Sender: FDA-Public Use
  Company Number: US-NOVEN-13US007168

PATIENT
  Sex: Female

DRUGS (1)
  1. MINIVELLE [Suspect]
     Indication: HOT FLUSH
     Dosage: 1/2 X 0.05 MG, 2/WK
     Route: 062
     Dates: start: 201306

REACTIONS (3)
  - Drug prescribing error [Not Recovered/Not Resolved]
  - Wrong technique in drug usage process [Not Recovered/Not Resolved]
  - No adverse event [None]
